FAERS Safety Report 4526262-8 (Version None)
Quarter: 2004Q4

REPORT INFORMATION
  Report Type: 
  Country: None (occurrence: None)
  Receive Date: 20041214
  Receipt Date: 20041012
  Transmission Date: 20050328
  Serious: Yes (Hospitalization)
  Sender: FDA-Public Use
  Company Number: PHNR2004AU01498

PATIENT
  Age: 71 Year
  Sex: Female

DRUGS (4)
  1. SIMVASTATIN [Concomitant]
     Indication: HYPERCHOLESTEROLAEMIA
  2. ELIDEL [Suspect]
     Indication: LICHEN SCLEROSUS
     Dosage: UNK, BID
     Route: 061
     Dates: end: 20040601
  3. DIABEX [Concomitant]
     Indication: DIABETES MELLITUS NON-INSULIN-DEPENDENT
  4. ASPIRIN [Concomitant]

REACTIONS (3)
  - DRUG INEFFECTIVE [None]
  - SQUAMOUS CELL CARCINOMA [None]
  - VULVAL CANCER [None]
